FAERS Safety Report 8905243 (Version 1)
Quarter: 2012Q4

REPORT INFORMATION
  Report Type: 
  Country: CA (occurrence: CA)
  Receive Date: 20121111
  Receipt Date: 20121111
  Transmission Date: 20130627
  Serious: Yes (Other)
  Sender: FDA-Public Use
  Company Number: PHMT2007CA00858

PATIENT
  Sex: Female

DRUGS (3)
  1. SANDOSTATIN LAR [Suspect]
     Indication: POST GASTRIC SURGERY SYNDROME
     Route: 030
     Dates: start: 20000910
  2. SANDOSTATIN LAR [Suspect]
     Dosage: 20 mg every 3 weeks
     Route: 030
     Dates: start: 2004
  3. SANDOSTATIN LAR [Suspect]
     Dosage: 20 mg, BIW
     Route: 030

REACTIONS (15)
  - Injection site mass [Not Recovered/Not Resolved]
  - Hyponatraemia [Recovering/Resolving]
  - Hyperglycaemia [Unknown]
  - Hypoglycaemia [Unknown]
  - Dizziness [Recovering/Resolving]
  - Diarrhoea [Not Recovered/Not Resolved]
  - Asthenia [Not Recovered/Not Resolved]
  - Fatigue [Recovering/Resolving]
  - Tremor [Unknown]
  - Photopsia [Unknown]
  - Hyperhidrosis [Unknown]
  - Blood pressure systolic increased [Unknown]
  - Gastrooesophageal reflux disease [Unknown]
  - Abdominal distension [Unknown]
  - Drug ineffective [Unknown]
